FAERS Safety Report 13947419 (Version 1)
Quarter: 2017Q3

REPORT INFORMATION
  Report Type: Spontaneous
  Country: US (occurrence: US)
  Receive Date: 20170908
  Receipt Date: 20170908
  Transmission Date: 20171128
  Serious: No
  Sender: FDA-Public Use
  Company Number: US-STRIDES ARCOLAB LIMITED-2017SP011937

PATIENT

DRUGS (3)
  1. PREDNISOLONE ACETATE. [Concomitant]
     Active Substance: PREDNISOLONE ACETATE
     Indication: EYE PAIN
     Dosage: 1 GTT (DROP), SIX TIMES DAILY
     Route: 061
  2. IBUPROFEN. [Suspect]
     Active Substance: IBUPROFEN
     Indication: EYE PAIN
     Dosage: 600 MG, TID
     Route: 048
  3. PREDNISOLONE ACETATE. [Concomitant]
     Active Substance: PREDNISOLONE ACETATE
     Indication: OCULAR HYPERAEMIA
     Dosage: 1 GTT (DROP), QID TO THE RIGHT EYE
     Route: 061

REACTIONS (2)
  - Gastric disorder [Unknown]
  - Drug ineffective [Unknown]
